FAERS Safety Report 6828486-3 (Version None)
Quarter: 2010Q3

REPORT INFORMATION
  Report Type: 
  Country: None (occurrence: None)
  Receive Date: 20100709
  Receipt Date: 20070211
  Transmission Date: 20110219
  Serious: Yes (Other)
  Sender: FDA-Public Use
  Company Number: US-PFIZER INC-2007011980

PATIENT
  Sex: Female
  Weight: 44 kg

DRUGS (4)
  1. CHANTIX [Suspect]
     Indication: EX-TOBACCO USER
     Dates: start: 20070128, end: 20070208
  2. NEURONTIN [Concomitant]
  3. HYDROCODONE BITARTRATE [Concomitant]
  4. ALL OTHER THERAPEUTIC PRODUCTS [Concomitant]

REACTIONS (6)
  - NAUSEA [None]
  - NERVOUSNESS [None]
  - POLLAKIURIA [None]
  - SWELLING [None]
  - URINARY INCONTINENCE [None]
  - VOMITING [None]
